FAERS Safety Report 10089602 (Version 1)
Quarter: 2014Q2

REPORT INFORMATION
  Report Type: Spontaneous
  Country: GB (occurrence: GB)
  Receive Date: 20140421
  Receipt Date: 20140421
  Transmission Date: 20141212
  Serious: Yes (Disabling)
  Sender: FDA-Public Use
  Company Number: GB-MYLANLABS-2014S1008620

PATIENT
  Age: 62 Year
  Sex: Male

DRUGS (7)
  1. TOLTERODINE [Suspect]
     Indication: URINARY RETENTION
     Route: 048
     Dates: start: 20140224, end: 20140308
  2. ASPIRIN [Concomitant]
  3. ATENOLOL [Concomitant]
  4. ATORVASTATIN [Concomitant]
  5. CO-DYDRAMOL [Concomitant]
  6. OMEPRAZOLE [Concomitant]
  7. RAMIPRIL [Concomitant]

REACTIONS (1)
  - Angle closure glaucoma [Recovered/Resolved with Sequelae]
